FAERS Safety Report 19057844 (Version 1)
Quarter: 2021Q1

REPORT INFORMATION
  Report Type: Spontaneous
  Country: US (occurrence: US)
  Receive Date: 20210324
  Receipt Date: 20210324
  Transmission Date: 20210420
  Serious: Yes (Other)
  Sender: FDA-Public Use
  Company Number: US-IBSA PHARMA-2021-IBS-00529

PATIENT
  Age: 87 Year
  Weight: 76.66 kg

DRUGS (1)
  1. FLECTOR [Suspect]
     Active Substance: DICLOFENAC EPOLAMINE
     Indication: PAIN
     Route: 062
     Dates: start: 20181102

REACTIONS (4)
  - Amnesia [Unknown]
  - Cardiac pacemaker insertion [Not Recovered/Not Resolved]
  - Expired product administered [Unknown]
  - Body height decreased [Unknown]

NARRATIVE: CASE EVENT DATE: 202102
